FAERS Safety Report 15003754 (Version 3)
Quarter: 2018Q3

REPORT INFORMATION
  Report Type: Report from Study
  Country: US (occurrence: US)
  Receive Date: 20180613
  Receipt Date: 20180807
  Transmission Date: 20181010
  Serious: No
  Sender: FDA-Public Use
  Company Number: US-AMGEN-USASL2018079146

PATIENT
  Age: 72 Year
  Sex: Female

DRUGS (1)
  1. ENBREL [Suspect]
     Active Substance: ETANERCEPT
     Indication: RHEUMATOID ARTHRITIS
     Dosage: 50 MG, QWK
     Route: 058

REACTIONS (7)
  - Cheilitis [Unknown]
  - Glossodynia [Not Recovered/Not Resolved]
  - Gingival discomfort [Unknown]
  - Gastrooesophageal reflux disease [Unknown]
  - Tongue haemorrhage [Recovered/Resolved]
  - Throat irritation [Unknown]
  - Gingival pain [Not Recovered/Not Resolved]
